FAERS Safety Report 12088321 (Version 7)
Quarter: 2016Q3

REPORT INFORMATION
  Report Type: Report from Study
  Country: FR (occurrence: FR)
  Receive Date: 20160218
  Receipt Date: 20160708
  Transmission Date: 20161109
  Serious: Yes (Hospitalization)
  Sender: FDA-Public Use
  Company Number: FR-ROCHE-1712471

PATIENT
  Age: 44 Year
  Sex: Female
  Weight: 88 kg

DRUGS (25)
  1. FENTANYL. [Suspect]
     Active Substance: FENTANYL
     Indication: SEDATION
     Route: 042
     Dates: start: 20160213, end: 20160214
  2. ATACAND [Concomitant]
     Active Substance: CANDESARTAN CILEXETIL
     Indication: HYPERTENSION
     Route: 048
     Dates: end: 20160212
  3. ACTRAPID [Concomitant]
     Active Substance: INSULIN HUMAN
     Indication: HYPERGLYCAEMIA
     Route: 042
     Dates: start: 20160213, end: 20160215
  4. ADRENALINE [Concomitant]
     Active Substance: EPINEPHRINE
     Indication: CARDIOGENIC SHOCK
     Route: 042
     Dates: start: 20160213, end: 20160214
  5. CORDARONE [Concomitant]
     Active Substance: AMIODARONE HYDROCHLORIDE
     Route: 048
     Dates: start: 20160213, end: 20160213
  6. EUPANTOL [Concomitant]
     Active Substance: PANTOPRAZOLE SODIUM
     Dosage: INDICATION: ULCER PREVENTION
     Route: 042
     Dates: start: 20160213, end: 20160217
  7. PERFALGAN [Concomitant]
     Active Substance: ACETAMINOPHEN
     Indication: PYREXIA
     Route: 042
     Dates: start: 20160213, end: 20160218
  8. TRACRIUM [Concomitant]
     Active Substance: ATRACURIUM BESYLATE
     Indication: SEDATION
     Route: 042
     Dates: start: 20160213, end: 20160213
  9. OSELTAMIVIR [Suspect]
     Active Substance: OSELTAMIVIR
     Indication: INFLUENZA
     Dosage: MOST RECENT DOSE OF OSELTAMIVIR ON 15/FEB/2016 AT 04.55
     Route: 048
     Dates: start: 20160214
  10. LASILIX [Concomitant]
     Active Substance: FUROSEMIDE
     Indication: PULMONARY OEDEMA
     Route: 042
     Dates: start: 20160215, end: 20160215
  11. NOREPINEPHRINE [Concomitant]
     Active Substance: NOREPINEPHRINE\NOREPINEPHRINE BITARTRATE
     Indication: CARDIOGENIC SHOCK
     Route: 042
     Dates: start: 20160213, end: 20160214
  12. BLINDED MHAA4549A (ANTI-INFLUENZA A MAB) [Suspect]
     Active Substance: INVESTIGATIONAL PRODUCT
     Indication: INFLUENZA
     Dosage: MOST RECENT DOSE OF BLINDED MHAA4549A (ANTI-INFLUENZA A MAB) ON 14/FEB/2016 AT 01.30
     Route: 042
     Dates: start: 20160214
  13. CELOCURINE [Concomitant]
     Active Substance: SUCCINYLCHOLINE CHLORIDE
     Indication: ENDOTRACHEAL INTUBATION
     Route: 042
     Dates: start: 20160213, end: 20160213
  14. CELOCURINE [Concomitant]
     Active Substance: SUCCINYLCHOLINE CHLORIDE
     Route: 042
     Dates: start: 20160215, end: 20160215
  15. CORDARONE [Concomitant]
     Active Substance: AMIODARONE HYDROCHLORIDE
     Route: 048
     Dates: start: 20160215, end: 20160216
  16. CORDARONE [Concomitant]
     Active Substance: AMIODARONE HYDROCHLORIDE
     Route: 042
     Dates: start: 20160213, end: 20160214
  17. CORDARONE [Concomitant]
     Active Substance: AMIODARONE HYDROCHLORIDE
     Dosage: INDICATION: SUSPICION OF VENTRICULAR TACHYCARDIA
     Route: 042
     Dates: start: 20160213, end: 20160213
  18. STRIADYNE [Concomitant]
     Dosage: INDICATION: SUSPICION OF VENTRICULAR TACHYCARDIA
     Route: 042
     Dates: start: 20160213, end: 20160213
  19. HYPNOMIDATE [Concomitant]
     Active Substance: ETOMIDATE SULFATE
     Indication: ENDOTRACHEAL INTUBATION
     Route: 042
     Dates: start: 20160213, end: 20160213
  20. HYPNOVEL (FRANCE) [Suspect]
     Active Substance: MIDAZOLAM\MIDAZOLAM HYDROCHLORIDE
     Indication: SEDATION
     Route: 042
     Dates: start: 20160213, end: 20160214
  21. AUGMENTIN [Concomitant]
     Active Substance: AMOXICILLIN\CLAVULANATE POTASSIUM
     Indication: PNEUMONIA ASPIRATION
     Route: 042
     Dates: start: 20160213, end: 20160219
  22. CALCIPARINE [Concomitant]
     Active Substance: HEPARIN CALCIUM
     Dosage: INDICATION: THROMBOSIS PREVENTION
     Route: 058
     Dates: start: 20160215, end: 20160217
  23. DIPRIVAN [Concomitant]
     Active Substance: PROPOFOL
     Indication: SEDATION
     Route: 042
     Dates: start: 20160215, end: 20160216
  24. HYPNOMIDATE [Concomitant]
     Active Substance: ETOMIDATE SULFATE
     Route: 042
     Dates: start: 20160215, end: 20160215
  25. LASILIX [Concomitant]
     Active Substance: FUROSEMIDE
     Route: 042
     Dates: start: 20160216, end: 20160218

REACTIONS (1)
  - Extubation [Recovered/Resolved]

NARRATIVE: CASE EVENT DATE: 20160215
